FAERS Safety Report 8097975-9 (Version None)
Quarter: 2012Q1

REPORT INFORMATION
  Report Type: 
  Country: None (occurrence: None)
  Receive Date: 20120128
  Receipt Date: 20110812
  Transmission Date: 20120608
  Serious: No
  Sender: FDA-Public Use
  Company Number: US-ABBOTT-11P-163-0846865-00

PATIENT
  Sex: Female
  Weight: 73.094 kg

DRUGS (6)
  1. LISINOPRIL [Concomitant]
     Indication: HYPERTENSION
  2. ZOLOFT [Concomitant]
     Indication: ANXIETY
  3. ASPIRIN [Concomitant]
     Indication: CARDIAC DISORDER
  4. VITAMIN B COMPLEX CAP [Concomitant]
     Indication: VITAMIN SUPPLEMENTATION
  5. HUMIRA [Suspect]
     Indication: PSORIATIC ARTHROPATHY
     Route: 058
     Dates: start: 20110301, end: 20110501
  6. ZOLOFT [Concomitant]
     Indication: NERVOUSNESS

REACTIONS (6)
  - DRY EYE [None]
  - SCLERITIS [None]
  - COUGH [None]
  - SINUSITIS [None]
  - EAR INFECTION [None]
  - INJECTION SITE HAEMATOMA [None]
